FAERS Safety Report 9582001 (Version 1)
Quarter: 2013Q4

REPORT INFORMATION
  Report Type: Spontaneous
  Country: US (occurrence: US)
  Receive Date: 20131002
  Receipt Date: 20131002
  Transmission Date: 20140711
  Serious: Yes (Other)
  Sender: FDA-Public Use
  Company Number: US-UCBSA-098767

PATIENT
  Sex: Female

DRUGS (11)
  1. CIMZIA [Suspect]
  2. PENTASA [Suspect]
  3. ASACOL [Suspect]
  4. CIPRO [Suspect]
  5. FLAGYL [Suspect]
  6. ENTOCORT [Suspect]
  7. REMICADE [Suspect]
  8. MORPHINE [Suspect]
  9. ONDANSETRON HYDROCHLORIDE [Suspect]
  10. 6MP [Suspect]
  11. PREDNISONE [Suspect]

REACTIONS (4)
  - Serum sickness [Unknown]
  - Pancreatitis [Unknown]
  - Neck surgery [Unknown]
  - Drug hypersensitivity [Unknown]
